FAERS Safety Report 4706732-X (Version None)
Quarter: 2005Q2

REPORT INFORMATION
  Report Type: 
  Country: None (occurrence: None)
  Receive Date: 20050629
  Receipt Date: 20050629
  Transmission Date: 20051028
  Serious: No
  Sender: FDA-Public Use
  Company Number: 04P-163-0278156-00

PATIENT
  Age: 56 Year
  Sex: Female
  Weight: 77.1115 kg

DRUGS (8)
  1. HUMIRA [Suspect]
     Indication: PSORIATIC ARTHROPATHY
     Dosage: 40 MG, 1 IN 2 WK, SUBCUTANEOUS
     Route: 058
     Dates: start: 20040701
  2. METHOTREXATE SODIUM [Concomitant]
  3. TOLTERODINE TARTRATE [Concomitant]
  4. ZOCOR [Concomitant]
  5. FEXOFENADINE HYDROCHLORIDE [Concomitant]
  6. SUDAPHEDRINE [Concomitant]
  7. TRIAMCINOLONE [Concomitant]
  8. FEXOFENADINE HCL [Concomitant]

REACTIONS (4)
  - HEADACHE [None]
  - INJECTION SITE HAEMORRHAGE [None]
  - SINUSITIS [None]
  - UPPER RESPIRATORY TRACT INFECTION [None]
